FAERS Safety Report 11707701 (Version 1)
Quarter: 2015Q4

REPORT INFORMATION
  Report Type: Spontaneous
  Country: US (occurrence: US)
  Receive Date: 20151104
  Receipt Date: 20151104
  Transmission Date: 20160304
  Serious: No
  Sender: FDA-Public Use
  Company Number: US-ELI_LILLY_AND_COMPANY-US201107001519

PATIENT
  Age: 66 Year
  Sex: Female

DRUGS (2)
  1. FORTEO [Suspect]
     Active Substance: TERIPARATIDE
     Indication: OSTEOPOROSIS
     Dosage: 20 UG, QD
     Route: 065
  2. IBUPROFEN. [Concomitant]
     Active Substance: IBUPROFEN

REACTIONS (7)
  - Bone pain [Not Recovered/Not Resolved]
  - Poor quality sleep [Unknown]
  - Headache [Unknown]
  - Nightmare [Recovered/Resolved]
  - Feeling hot [Not Recovered/Not Resolved]
  - Restlessness [Recovered/Resolved]
  - Drug dose omission [Unknown]

NARRATIVE: CASE EVENT DATE: 20110715
